FAERS Safety Report 6124185-4 (Version None)
Quarter: 2009Q1

REPORT INFORMATION
  Report Type: 
  Country: None (occurrence: None)
  Receive Date: 20090319
  Receipt Date: 20090317
  Transmission Date: 20090719
  Serious: Yes (Other)
  Sender: FDA-Public Use
  Company Number: CA-JNJFOC-20090303303

PATIENT

DRUGS (1)
  1. CONCERTA [Suspect]
     Indication: DRUG ABUSE
     Route: 065

REACTIONS (3)
  - DRUG ABUSE [None]
  - PRODUCT QUALITY ISSUE [None]
  - WRONG TECHNIQUE IN DRUG USAGE PROCESS [None]
